FAERS Safety Report 9380341 (Version 2)
Quarter: 2013Q3

REPORT INFORMATION
  Report Type: Spontaneous
  Country: US (occurrence: US)
  Receive Date: 20130702
  Receipt Date: 20130904
  Transmission Date: 20140515
  Serious: Yes (Death)
  Sender: FDA-Public Use
  Company Number: US-GLAXOSMITHKLINE-A1029106A

PATIENT
  Age: 79 Year
  Sex: Male

DRUGS (5)
  1. ARIXTRA [Suspect]
     Indication: PULMONARY EMBOLISM
     Dosage: 7.5MG PER DAY
     Route: 058
     Dates: start: 2011, end: 20130616
  2. LIPITOR [Concomitant]
  3. LORAZEPAM [Concomitant]
  4. PRILOSEC [Concomitant]
  5. OXYCODONE [Concomitant]

REACTIONS (1)
  - Lung neoplasm malignant [Fatal]
